FAERS Safety Report 14860362 (Version 1)
Quarter: 2018Q2

REPORT INFORMATION
  Report Type: Report from Study
  Country: US (occurrence: US)
  Receive Date: 20180508
  Receipt Date: 20180508
  Transmission Date: 20180711
  Serious: Yes (Other)
  Sender: FDA-Public Use
  Company Number: US-JAZZ-2018-US-001685

PATIENT
  Age: 46 Year
  Sex: Male

DRUGS (40)
  1. XYREM [Suspect]
     Active Substance: SODIUM OXYBATE
     Dosage: 2.5 G, BID
     Route: 048
     Dates: start: 201801, end: 201801
  2. XYREM [Suspect]
     Active Substance: SODIUM OXYBATE
     Dosage: DOSE ADJUSTMENT
     Route: 048
     Dates: start: 201801, end: 2018
  3. WELLBUTRIN [Suspect]
     Active Substance: BUPROPION HYDROCHLORIDE
     Indication: PRODUCT USED FOR UNKNOWN INDICATION
  4. BYSTOLIC [Concomitant]
     Active Substance: NEBIVOLOL HYDROCHLORIDE
  5. OMEPRAZOLE. [Concomitant]
     Active Substance: OMEPRAZOLE
  6. VITAMIN D3 [Concomitant]
     Active Substance: CHOLECALCIFEROL
  7. MEMANTINE. [Suspect]
     Active Substance: MEMANTINE
     Indication: PRODUCT USED FOR UNKNOWN INDICATION
  8. BIOTIN [Concomitant]
     Active Substance: BIOTIN
  9. LOVASTATIN. [Concomitant]
     Active Substance: LOVASTATIN
  10. METFORMIN HCL [Concomitant]
     Active Substance: METFORMIN HYDROCHLORIDE
  11. XYREM [Suspect]
     Active Substance: SODIUM OXYBATE
     Indication: NARCOLEPSY
     Dosage: 2.25 G, BID
     Route: 048
     Dates: start: 20180118, end: 201801
  12. LAMOTRIGINE. [Suspect]
     Active Substance: LAMOTRIGINE
     Indication: PRODUCT USED FOR UNKNOWN INDICATION
  13. AMLODIPINE BESYLATE. [Concomitant]
     Active Substance: AMLODIPINE BESYLATE
  14. FISH OIL [Concomitant]
     Active Substance: FISH OIL
  15. LAMICTAL [Concomitant]
     Active Substance: LAMOTRIGINE
  16. MODAFINIL. [Concomitant]
     Active Substance: MODAFINIL
  17. XYREM [Suspect]
     Active Substance: SODIUM OXYBATE
     Dosage: 4 G, BID
     Route: 048
     Dates: start: 201802
  18. VYVANSE [Suspect]
     Active Substance: LISDEXAMFETAMINE DIMESYLATE
     Indication: PRODUCT USED FOR UNKNOWN INDICATION
  19. DEPLIN [Concomitant]
     Active Substance: LEVOMEFOLATE CALCIUM
  20. DUAC [Concomitant]
     Active Substance: BENZOYL PEROXIDE\CLINDAMYCIN PHOSPHATE
  21. MOMETASONE FUROATE. [Concomitant]
     Active Substance: MOMETASONE FUROATE
  22. LEVOCETIRIZINE [Concomitant]
     Active Substance: LEVOCETIRIZINE
  23. TESTOSTERONE CYPIONATE. [Concomitant]
     Active Substance: TESTOSTERONE CYPIONATE
  24. TYLENOL EXTRA STRENGTH [Concomitant]
     Active Substance: ACETAMINOPHEN
  25. VRAYLAR [Concomitant]
     Active Substance: CARIPRAZINE
  26. LEVOTHYROXINE. [Concomitant]
     Active Substance: LEVOTHYROXINE
  27. CELEBREX [Concomitant]
     Active Substance: CELECOXIB
  28. METAXALONE. [Concomitant]
     Active Substance: METAXALONE
  29. TRINTELLIX [Concomitant]
     Active Substance: VORTIOXETINE HYDROBROMIDE
  30. LISINOPRIL. [Concomitant]
     Active Substance: LISINOPRIL
  31. PENNSAID [Concomitant]
     Active Substance: DICLOFENAC SODIUM
  32. ARIMIDEX [Concomitant]
     Active Substance: ANASTROZOLE
  33. ASPIRIN 81 [Concomitant]
     Active Substance: ASPIRIN
  34. CIALIS [Concomitant]
     Active Substance: TADALAFIL
  35. ROGAINE [Concomitant]
     Active Substance: MINOXIDIL
  36. VIAGRA [Concomitant]
     Active Substance: SILDENAFIL CITRATE
  37. LATANOPROST. [Concomitant]
     Active Substance: LATANOPROST
  38. MAGNESIUM OXIDE. [Concomitant]
     Active Substance: MAGNESIUM OXIDE
  39. SILDENAFIL. [Concomitant]
     Active Substance: SILDENAFIL
  40. TRAMADOL HCL [Concomitant]
     Active Substance: TRAMADOL HYDROCHLORIDE

REACTIONS (14)
  - Disturbance in attention [Not Recovered/Not Resolved]
  - Pre-existing condition improved [Unknown]
  - Blood pressure increased [Unknown]
  - Confusional state [Not Recovered/Not Resolved]
  - Night sweats [Not Recovered/Not Resolved]
  - Hypermetabolism [Not Recovered/Not Resolved]
  - Anxiety [Not Recovered/Not Resolved]
  - Hyperhidrosis [Not Recovered/Not Resolved]
  - Hypercalcaemia [Unknown]
  - Aspartate aminotransferase increased [Unknown]
  - Condition aggravated [Not Recovered/Not Resolved]
  - Feeling abnormal [Not Recovered/Not Resolved]
  - Petit mal epilepsy [Not Recovered/Not Resolved]
  - Alanine aminotransferase increased [Unknown]

NARRATIVE: CASE EVENT DATE: 20180118
